FAERS Safety Report 8514883-7 (Version None)
Quarter: 2012Q3

REPORT INFORMATION
  Report Type: 
  Country: None (occurrence: None)
  Receive Date: 20120717
  Receipt Date: 20120712
  Transmission Date: 20120928
  Serious: Yes (Other)
  Sender: FDA-Public Use
  Company Number: BR-PFIZER INC-2012168917

PATIENT
  Age: 48 Year
  Sex: Female

DRUGS (3)
  1. LOSARTAN [Concomitant]
     Indication: HYPERTENSION
     Dosage: UNK
  2. SYNTHROID [Concomitant]
     Indication: HYPOTHYROIDISM
     Dosage: UNK
  3. VARENICLINE TARTRATE [Suspect]
     Indication: SMOKING CESSATION THERAPY
     Dosage: UNK
     Route: 048
     Dates: start: 20120705, end: 20120701

REACTIONS (5)
  - LOCAL SWELLING [None]
  - SWELLING FACE [None]
  - FEELING ABNORMAL [None]
  - NECK PAIN [None]
  - HEADACHE [None]
